FAERS Safety Report 15891757 (Version 3)
Quarter: 2019Q1

REPORT INFORMATION
  Report Type: Not Available
  Country: US (occurrence: US)
  Receive Date: 20190130
  Receipt Date: 20190319
  Transmission Date: 20190417
  Serious: Yes (Hospitalization)
  Sender: FDA-Public Use
  Company Number: US-NEUROCRINE BIOSCIENCES INC.-2019NBI00269

PATIENT

DRUGS (3)
  1. INGREZZA [Suspect]
     Active Substance: VALBENAZINE
     Indication: TARDIVE DYSKINESIA
     Route: 048
     Dates: start: 20181217
  2. BENZTROPINE. [Concomitant]
     Active Substance: BENZTROPINE
     Indication: EXTRAPYRAMIDAL DISORDER
  3. BENADRYL [Concomitant]
     Active Substance: DIPHENHYDRAMINE HYDROCHLORIDE
     Dosage: AT BED TIME

REACTIONS (2)
  - Mental disorder [Unknown]
  - Abdominal pain [Recovered/Resolved]
